FAERS Safety Report 5498926-3 (Version None)
Quarter: 2007Q4

REPORT INFORMATION
  Report Type: 
  Country: None (occurrence: None)
  Receive Date: 20071024
  Receipt Date: 20071024
  Transmission Date: 20080405
  Serious: Yes (Other)
  Sender: FDA-Public Use
  Company Number: None

PATIENT
  Age: 18 Year
  Sex: Female
  Weight: 192.3251 kg

DRUGS (1)
  1. CLINDAMYCIN 300 MG [Suspect]
     Indication: ARTHROPOD BITE
     Dosage: 3 3X DAILY PO
     Route: 048
     Dates: start: 20071022, end: 20071023

REACTIONS (1)
  - DRUG HYPERSENSITIVITY [None]
